FAERS Safety Report 20725072 (Version 3)
Quarter: 2022Q2

REPORT INFORMATION
  Report Type: Report from Study
  Country: US (occurrence: US)
  Receive Date: 20220419
  Receipt Date: 20220518
  Transmission Date: 20220721
  Serious: Yes (Death, Hospitalization, Other)
  Sender: FDA-Public Use
  Company Number: US-HBP-2022US025938

PATIENT
  Age: 76 Year
  Sex: Female

DRUGS (12)
  1. VALCHLOR [Suspect]
     Active Substance: MECHLORETHAMINE
     Indication: Cutaneous T-cell lymphoma
     Dosage: THIN FILM, EVERY EVENING
     Route: 061
     Dates: start: 20220217
  2. VALCHLOR [Suspect]
     Active Substance: MECHLORETHAMINE
     Dosage: UNK, QOD
     Route: 061
     Dates: end: 202203
  3. CLOBETASOL [Concomitant]
     Active Substance: CLOBETASOL
     Dosage: UNK, UNKNOWN
  4. CALCIUM WITH VITAMIN D3            /00944201/ [Concomitant]
     Dosage: UNK, UNKNOWN
  5. TRIAMCINOLONE ACETONIDE [Concomitant]
     Active Substance: TRIAMCINOLONE ACETONIDE
     Dosage: UNK, UNKNOWN
  6. CLOBETASOL PROPIONATE [Concomitant]
     Active Substance: CLOBETASOL PROPIONATE
     Dosage: UNK, UNKNOWN
  7. ICAPS                              /07499601/ [Concomitant]
     Dosage: UNK, UNKNOWN
  8. PRAVASTATIN SODIUM [Concomitant]
     Active Substance: PRAVASTATIN SODIUM
     Dosage: UNK, UNKNOWN
  9. COQ10                              /00517201/ [Concomitant]
     Dosage: UNK, UNKNOWN
  10. VITAMIN B12 [Concomitant]
     Active Substance: CYANOCOBALAMIN
     Dosage: UNK, UNKNOWN
  11. FISH OIL [Concomitant]
     Active Substance: FISH OIL
     Dosage: UNK, UNKNOWN
  12. DOXEPIN [Concomitant]
     Active Substance: DOXEPIN
     Dosage: UNK, UNKNOWN

REACTIONS (9)
  - Malignant neoplasm progression [Fatal]
  - Lymphoma [Fatal]
  - Graft versus host disease in lung [Fatal]
  - Pneumonia fungal [Recovered/Resolved]
  - Total lung capacity decreased [Unknown]
  - Swelling [Not Recovered/Not Resolved]
  - Application site pain [Recovering/Resolving]
  - Intentional dose omission [Unknown]
  - Pain of skin [Unknown]

NARRATIVE: CASE EVENT DATE: 20220301
